FAERS Safety Report 9872919 (Version 1)
Quarter: 2014Q1

REPORT INFORMATION
  Report Type: Other
  Country: US (occurrence: US)
  Receive Date: 20140206
  Receipt Date: 20140206
  Transmission Date: 20141002
  Serious: No
  Sender: FDA-Public Use
  Company Number: US-ACORDA-ACO_100914_2013

PATIENT
  Age: 54 Year
  Sex: Female
  Weight: 68.48 kg

DRUGS (2)
  1. AMPYRA [Suspect]
     Indication: GAIT DISTURBANCE
     Dosage: 10 MG, QD
     Route: 065
     Dates: start: 2010, end: 2010
  2. AMPYRA [Suspect]
     Dosage: 10 MG, QD
     Route: 065
     Dates: start: 20131108, end: 20131214

REACTIONS (4)
  - Tremor [Recovering/Resolving]
  - Nervousness [Unknown]
  - Heart rate increased [Unknown]
  - Drug ineffective [Unknown]
